FAERS Safety Report 10694155 (Version 1)
Quarter: 2015Q1

REPORT INFORMATION
  Report Type: Other
  Country: JP (occurrence: JP)
  Receive Date: 20150106
  Receipt Date: 20150106
  Transmission Date: 20150721
  Serious: Yes (Hospitalization, Other)
  Sender: FDA-Public Use
  Company Number: JP-AMARIN PHARMA, INC.-2014AMR000113

PATIENT
  Sex: Male

DRUGS (1)
  1. EPADEL [Suspect]
     Active Substance: ICOSAPENT
     Indication: BLOOD TRIGLYCERIDES INCREASED
     Route: 065

REACTIONS (1)
  - Neonatal respiratory distress syndrome [Recovered/Resolved]
